FAERS Safety Report 4680030-5 (Version None)
Quarter: 2005Q2

REPORT INFORMATION
  Report Type: 
  Country: None (occurrence: None)
  Receive Date: 20050602
  Receipt Date: 20050308
  Transmission Date: 20051028
  Serious: Yes (Hospitalization)
  Sender: FDA-Public Use
  Company Number: 396759

PATIENT
  Age: 68 Year
  Sex: Male

DRUGS (12)
  1. CARVEDILOL [Suspect]
     Indication: ILL-DEFINED DISORDER
     Dosage: 2TAB PER DAY
     Route: 048
     Dates: start: 20030701
  2. GOSERELIN [Suspect]
     Indication: PROSTATE CANCER
     Dosage: 10.8MG PER DAY
     Route: 030
     Dates: start: 20030615
  3. CLOPIDOGREL BISULFATE [Suspect]
     Indication: ILL-DEFINED DISORDER
     Dosage: 1U PER DAY
     Route: 058
     Dates: start: 20030615
  4. PRAVASTATIN [Suspect]
     Indication: ILL-DEFINED DISORDER
     Dosage: 1U PER DAY
     Route: 048
     Dates: start: 20030701
  5. ALFUZOSIN [Suspect]
     Indication: ILL-DEFINED DISORDER
     Dosage: 1U PER DAY
     Route: 048
     Dates: start: 20030701
  6. BUFLOMEDIL [Suspect]
     Indication: ILL-DEFINED DISORDER
     Dosage: 2U PER DAY
     Route: 048
     Dates: start: 20030701
  7. POTASSIUM CHLORIDE [Concomitant]
     Route: 065
  8. ASPIRIN [Concomitant]
     Route: 065
  9. OMEPRAZOLE [Concomitant]
     Route: 065
  10. CHLORDIAZEPOXIDE HYDROCHLORIDE + CLIDINIUM BROMIDE [Concomitant]
     Route: 065
  11. FUROSEMIDE [Concomitant]
     Route: 065
  12. RAMIPRIL [Concomitant]
     Route: 065

REACTIONS (2)
  - ARTERIOSPASM CORONARY [None]
  - MYOCARDIAL INFARCTION [None]
